FAERS Safety Report 17915955 (Version 1)
Quarter: 2020Q2

REPORT INFORMATION
  Report Type: Spontaneous
  Country: US (occurrence: US)
  Receive Date: 20200618
  Receipt Date: 20200618
  Transmission Date: 20200714
  Serious: Yes (Death)
  Sender: FDA-Public Use
  Company Number: None

PATIENT
  Age: 84 Year
  Sex: Female
  Weight: 85 kg

DRUGS (15)
  1. PERCEDEX DRIP [Concomitant]
     Dates: start: 20200604, end: 20200605
  2. NOREPINEPHRINE. [Concomitant]
     Active Substance: NOREPINEPHRINE
     Dates: start: 20200605, end: 20200614
  3. HEPARIN [Concomitant]
     Active Substance: HEPARIN SODIUM
     Dates: start: 20200605, end: 20200614
  4. HUMALOG [Concomitant]
     Active Substance: INSULIN LISPRO
     Dates: start: 20200605, end: 20200612
  5. ASCOBIC ACID [Concomitant]
     Dates: start: 20200607, end: 20200614
  6. FENTANYL DRIP [Concomitant]
     Dates: start: 20200605, end: 20200614
  7. PROPOFOL. [Concomitant]
     Active Substance: PROPOFOL
     Dates: start: 20200605, end: 20200614
  8. ZINC. [Concomitant]
     Active Substance: ZINC
     Dates: start: 20200607, end: 20200614
  9. TPN [Concomitant]
     Active Substance: AMINO ACIDS\DEXTROSE\ELECTROLYTES NOS\SOYBEAN OIL
     Dates: start: 20200612, end: 20200614
  10. MIDAZOLAM DRIP [Concomitant]
     Dates: start: 20200612, end: 20200614
  11. ESOMEPRAZOLE. [Concomitant]
     Active Substance: ESOMEPRAZOLE MAGNESIUM
     Dates: start: 20200606, end: 20200614
  12. SELENIUN [Concomitant]
     Dates: start: 20200607, end: 20200614
  13. REMDESIVIR. [Suspect]
     Active Substance: REMDESIVIR
     Indication: COVID-19
     Route: 042
     Dates: start: 20200603, end: 20200603
  14. REMDESIVIR. [Suspect]
     Active Substance: REMDESIVIR
     Indication: COVID-19
     Route: 042
     Dates: start: 20200604, end: 20200612
  15. ROCURONIUM [Concomitant]
     Active Substance: ROCURONIUM BROMIDE
     Dates: start: 20200605, end: 20200612

REACTIONS (4)
  - Hypotension [None]
  - Paralysis [None]
  - Azotaemia [None]
  - Lung consolidation [None]

NARRATIVE: CASE EVENT DATE: 20200614
